FAERS Safety Report 10848799 (Version 1)
Quarter: 2015Q1

REPORT INFORMATION
  Report Type: Spontaneous
  Country: US (occurrence: US)
  Receive Date: 20150220
  Receipt Date: 20150220
  Transmission Date: 20150721
  Serious: Yes (Other)
  Sender: FDA-Public Use
  Company Number: US-CELGENEUS-163-21880-13063109

PATIENT
  Age: 72 Year
  Sex: Female
  Weight: 46.76 kg

DRUGS (4)
  1. REVLIMID [Suspect]
     Active Substance: LENALIDOMIDE
     Indication: PLASMA CELL MYELOMA
     Route: 048
     Dates: start: 201208
  2. REVLIMID [Suspect]
     Active Substance: LENALIDOMIDE
     Route: 048
     Dates: start: 20130513
  3. REVLIMID [Suspect]
     Active Substance: LENALIDOMIDE
     Dosage: 5 MG -10 MG
     Route: 048
     Dates: start: 201208
  4. REVLIMID [Suspect]
     Active Substance: LENALIDOMIDE
     Route: 048
     Dates: start: 20140322

REACTIONS (6)
  - Dry throat [Unknown]
  - Nausea [Not Recovered/Not Resolved]
  - Swelling face [Unknown]
  - Pain [Unknown]
  - Renal impairment [Not Recovered/Not Resolved]
  - Breast oedema [Unknown]

NARRATIVE: CASE EVENT DATE: 201208
